FAERS Safety Report 21686933 (Version 2)
Quarter: 2025Q2

REPORT INFORMATION
  Report Type: Spontaneous
  Country: US (occurrence: US)
  Receive Date: 20221206
  Receipt Date: 20250529
  Transmission Date: 20250717
  Serious: Yes (Life-Threatening, Hospitalization, Other)
  Sender: AUROBINDO
  Company Number: US-MLMSERVICE-20221117-3925616-1

PATIENT
  Age: 17 Year
  Sex: Female
  Weight: 103 kg

DRUGS (7)
  1. AMLODIPINE [Suspect]
     Active Substance: AMLODIPINE BESYLATE
     Indication: Product used for unknown indication
     Route: 048
  2. AMLODIPINE [Suspect]
     Active Substance: AMLODIPINE BESYLATE
     Route: 048
  3. AMOXICILLIN [Concomitant]
     Active Substance: AMOXICILLIN
     Indication: Product used for unknown indication
     Route: 065
  4. ACETAMINOPHEN [Concomitant]
     Active Substance: ACETAMINOPHEN
     Indication: Product used for unknown indication
     Route: 065
  5. IBUPROFEN [Concomitant]
     Active Substance: IBUPROFEN
     Indication: Product used for unknown indication
     Route: 065
  6. ACETAMINOPHEN [Concomitant]
     Active Substance: ACETAMINOPHEN
     Indication: Product used for unknown indication
     Route: 065
  7. INSULIN NOS [Concomitant]
     Active Substance: INSULIN NOS
     Indication: Hypotension
     Route: 065

REACTIONS (9)
  - Vasoplegia syndrome [Recovering/Resolving]
  - Hypotension [Recovering/Resolving]
  - Cerebrovascular accident [Recovering/Resolving]
  - Acute kidney injury [Recovering/Resolving]
  - Circulatory collapse [Recovering/Resolving]
  - Visual field defect [Recovering/Resolving]
  - Haemodynamic instability [Recovering/Resolving]
  - Seizure [Recovering/Resolving]
  - Intentional overdose [Recovering/Resolving]
